FAERS Safety Report 8849188 (Version 1)
Quarter: 2012Q4

REPORT INFORMATION
  Report Type: 
  Country: US (occurrence: US)
  Receive Date: 20121019
  Receipt Date: 20121019
  Transmission Date: 20130627
  Serious: Yes (Other)
  Sender: FDA-Public Use
  Company Number: PHEH2012US020318

PATIENT
  Sex: Female

DRUGS (3)
  1. VIVELLE DOT [Suspect]
     Dosage: Two patches(0.375mg and 0.1 mg)
     Route: 062
  2. VIVELLE DOT [Suspect]
     Dosage: 0.1 mg, UNK
     Route: 062
  3. ARMOUR THYROID [Concomitant]

REACTIONS (7)
  - Breast cyst [Unknown]
  - Cerebrovascular accident [Unknown]
  - Headache [Unknown]
  - VIIth nerve paralysis [Unknown]
  - Visual field defect [Unknown]
  - Dizziness [Unknown]
  - Incorrect dose administered [Unknown]
